FAERS Safety Report 25352011 (Version 2)
Quarter: 2025Q2

REPORT INFORMATION
  Report Type: Report from Study
  Country: IN (occurrence: IN)
  Receive Date: 20250523
  Receipt Date: 20250610
  Transmission Date: 20250717
  Serious: Yes (Death, Hospitalization)
  Sender: ROCHE
  Company Number: IN-ROCHE-10000286658

PATIENT
  Age: 65 Year
  Sex: Male

DRUGS (1)
  1. TECENTRIQ [Suspect]
     Active Substance: ATEZOLIZUMAB
     Indication: Non-small cell lung cancer
     Route: 042
     Dates: start: 20250429

REACTIONS (3)
  - Dyspnoea [Unknown]
  - Lung disorder [Unknown]
  - Death [Fatal]
